FAERS Safety Report 11038624 (Version 9)
Quarter: 2018Q3

REPORT INFORMATION
  Report Type: Report from Study
  Country: US (occurrence: US)
  Receive Date: 20150416
  Receipt Date: 20180710
  Transmission Date: 20181010
  Serious: Yes (Disabling, Other)
  Sender: FDA-Public Use
  Company Number: US-SA-2014SA090619

PATIENT
  Age: 56 Year
  Sex: Female

DRUGS (7)
  1. TERIFLUNOMIDE [Suspect]
     Active Substance: TERIFLUNOMIDE
     Dosage: 14 MG,QD
     Route: 048
     Dates: end: 20150808
  2. TERIFLUNOMIDE [Suspect]
     Active Substance: TERIFLUNOMIDE
     Indication: MULTIPLE SCLEROSIS
     Dosage: 14 MG,QD
     Route: 048
     Dates: start: 20140701
  3. TERIFLUNOMIDE [Suspect]
     Active Substance: TERIFLUNOMIDE
     Dosage: 14 MG,QD
     Route: 048
     Dates: start: 2015, end: 20160118
  4. TERIFLUNOMIDE [Suspect]
     Active Substance: TERIFLUNOMIDE
     Dosage: 14 MG,QD
     Route: 048
  5. TERIFLUNOMIDE [Suspect]
     Active Substance: TERIFLUNOMIDE
     Dosage: 14 MG,QD
     Route: 048
     Dates: start: 20140701
  6. TERIFLUNOMIDE [Suspect]
     Active Substance: TERIFLUNOMIDE
     Dosage: UNK
  7. TERIFLUNOMIDE [Suspect]
     Active Substance: TERIFLUNOMIDE
     Dosage: 14 MG,QD
     Route: 048
     Dates: end: 20150808

REACTIONS (34)
  - Muscular weakness [Recovered/Resolved]
  - Amnesia [Unknown]
  - Sensory loss [Unknown]
  - Fatigue [Not Recovered/Not Resolved]
  - Influenza [Unknown]
  - Dyspnoea [Unknown]
  - Dyspepsia [Not Recovered/Not Resolved]
  - Mobility decreased [Unknown]
  - Dysgraphia [Not Recovered/Not Resolved]
  - Limb discomfort [Unknown]
  - Arthralgia [Not Recovered/Not Resolved]
  - Loss of personal independence in daily activities [Unknown]
  - Stress [Unknown]
  - Hepatic enzyme increased [Not Recovered/Not Resolved]
  - Thinking abnormal [Unknown]
  - Multiple sclerosis [Not Recovered/Not Resolved]
  - Nausea [Unknown]
  - Paraesthesia [Not Recovered/Not Resolved]
  - Alopecia [Not Recovered/Not Resolved]
  - Cognitive disorder [Not Recovered/Not Resolved]
  - Feeling abnormal [Unknown]
  - Disorientation [Unknown]
  - Diarrhoea [Not Recovered/Not Resolved]
  - Occipital neuralgia [Unknown]
  - Hemiparesis [Unknown]
  - Joint swelling [Unknown]
  - Pruritus [Not Recovered/Not Resolved]
  - Disturbance in attention [Not Recovered/Not Resolved]
  - Walking aid user [Unknown]
  - Arthropathy [Unknown]
  - Gait disturbance [Not Recovered/Not Resolved]
  - Feeling abnormal [Unknown]
  - Alopecia [Not Recovered/Not Resolved]
  - Drug dose omission [Unknown]

NARRATIVE: CASE EVENT DATE: 201407
